FAERS Safety Report 9792869 (Version 1)
Quarter: 2014Q1

REPORT INFORMATION
  Report Type: Spontaneous
  Country: US (occurrence: US)
  Receive Date: 20140102
  Receipt Date: 20140102
  Transmission Date: 20141002
  Serious: No
  Sender: FDA-Public Use
  Company Number: US-SA-2013SA127039

PATIENT
  Age: 53 Year
  Sex: Male

DRUGS (3)
  1. AUBAGIO [Suspect]
     Indication: MULTIPLE SCLEROSIS
     Route: 065
     Dates: start: 20130401, end: 20131202
  2. ALL OTHER THERAPEUTIC PRODUCTS [Concomitant]
  3. METAMUCIL [Concomitant]

REACTIONS (1)
  - Pigmentation disorder [Unknown]
